FAERS Safety Report 25461912 (Version 1)
Quarter: 2025Q2

REPORT INFORMATION
  Report Type: Spontaneous
  Country: US (occurrence: None)
  Receive Date: 20250619
  Receipt Date: 20250619
  Transmission Date: 20250717
  Serious: Yes (unspecified)
  Sender: FDA-CTU
  Company Number: None

PATIENT
  Age: 14 Year
  Sex: Male
  Weight: 34.2 kg

DRUGS (1)
  1. R-GENE [Suspect]
     Active Substance: ARGININE HYDROCHLORIDE
     Indication: Somatotropin stimulation test
     Route: 042

REACTIONS (6)
  - Infusion related reaction [None]
  - Bradycardia [None]
  - Hypotension [None]
  - Hypoxia [None]
  - Pallor [None]
  - Cardio-respiratory arrest [None]

NARRATIVE: CASE EVENT DATE: 20250612
